FAERS Safety Report 8764227 (Version 1)
Quarter: 2012Q4

REPORT INFORMATION
  Report Type: 
  Country: US (occurrence: US)
  Receive Date: 20120828
  Receipt Date: 20120828
  Transmission Date: 20130627
  Serious: Yes (Hospitalization, Other)
  Sender: FDA-Public Use
  Company Number: US-ELI_LILLY_AND_COMPANY-US201208005974

PATIENT
  Age: 66 None
  Sex: Female

DRUGS (8)
  1. FORTEO [Suspect]
     Indication: OSTEOPOROSIS
     Dosage: UNK, qd
  2. FORTEO [Suspect]
     Dosage: UNK, qd
  3. ESTRADIOL [Concomitant]
     Dosage: 2 mg, unknown
  4. SINGULAR [Concomitant]
     Dosage: UNK
  5. CITALOPRAM [Concomitant]
     Dosage: UNK
  6. FLUTICASONE [Concomitant]
     Dosage: UNK
     Route: 045
  7. RESTASIS [Suspect]
     Dosage: UNK
     Route: 047
  8. MURO-128 [Concomitant]
     Dosage: UNK
     Route: 047

REACTIONS (2)
  - Cerebrovascular accident [Recovering/Resolving]
  - Incorrect storage of drug [Unknown]
